FAERS Safety Report 10787496 (Version 1)
Quarter: 2015Q1

REPORT INFORMATION
  Report Type: Spontaneous
  Country: US (occurrence: US)
  Receive Date: 20150212
  Receipt Date: 20150212
  Transmission Date: 20150721
  Serious: Yes (Hospitalization)
  Sender: FDA-Public Use
  Company Number: US-SUN PHARMACEUTICAL INDUSTRIES LTD-2015SUN00369

PATIENT

DRUGS (1)
  1. PHENTERMINE HYDROCHLORIDE CAPSULES, USP 30 MG [Suspect]
     Active Substance: PHENTERMINE HYDROCHLORIDE
     Indication: OBESITY
     Route: 065

REACTIONS (1)
  - Spinal cord infarction [Unknown]
